FAERS Safety Report 4356466-9 (Version None)
Quarter: 2004Q2

REPORT INFORMATION
  Report Type: 
  Country: None (occurrence: None)
  Receive Date: 20040512
  Receipt Date: 20040503
  Transmission Date: 20050107
  Serious: Yes (Life-Threatening)
  Sender: FDA-Public Use
  Company Number: 200411422EU

PATIENT
  Age: 78 Year
  Sex: Female

DRUGS (6)
  1. GLYBURIDE [Suspect]
     Route: 048
     Dates: start: 19920101, end: 20030101
  2. AVANDIA [Suspect]
     Route: 048
     Dates: start: 20031128, end: 20040204
  3. NOVOLOG [Suspect]
     Dosage: DOSE UNIT: INTERNATIONAL UNITS PER MILLILITRE
     Route: 058
     Dates: start: 20010101
  4. ZESTRIL [Concomitant]
     Route: 048
     Dates: start: 19940101
  5. DYTA-URESE [Concomitant]
     Dates: start: 19580101
  6. STRUMAZOL [Concomitant]
     Dates: start: 20010101

REACTIONS (11)
  - CARDIAC FAILURE [None]
  - CHEST DISCOMFORT [None]
  - DRUG INTERACTION [None]
  - FATIGUE [None]
  - FLUSHING [None]
  - HEADACHE [None]
  - HYPOGLYCAEMIA [None]
  - MEDICATION ERROR [None]
  - OEDEMA PERIPHERAL [None]
  - TREMOR [None]
  - VISION BLURRED [None]
